FAERS Safety Report 13093879 (Version 1)
Quarter: 2017Q1

REPORT INFORMATION
  Report Type: Spontaneous
  Country: US (occurrence: US)
  Receive Date: 20170106
  Receipt Date: 20170106
  Transmission Date: 20170428
  Serious: Yes (Hospitalization)
  Sender: FDA-Public Use
  Company Number: US-BAYER-2017-001155

PATIENT
  Age: 66 Year
  Sex: Female
  Weight: 73 kg

DRUGS (1)
  1. CORICIDIN HBP NIGHTTIME [Suspect]
     Active Substance: ACETAMINOPHEN\DEXTROMETHORPHAN HYDROBROMIDE\DOXYLAMINE SUCCINATE
     Dosage: 1 DF, UNK
     Route: 048
     Dates: start: 20161130, end: 20161130

REACTIONS (6)
  - Swelling [None]
  - Aphonia [Recovered/Resolved]
  - Dyspnoea [None]
  - Hypersensitivity [None]
  - Abnormal weight gain [None]
  - Hypophagia [Recovered/Resolved]

NARRATIVE: CASE EVENT DATE: 20161130
